FAERS Safety Report 13739805 (Version 1)
Quarter: 2017Q3

REPORT INFORMATION
  Report Type: Spontaneous
  Country: FR (occurrence: FR)
  Receive Date: 20170711
  Receipt Date: 20170711
  Transmission Date: 20171127
  Serious: Yes (Life-Threatening, Hospitalization, Other)
  Sender: FDA-Public Use
  Company Number: FR-GLAXOSMITHKLINE-FR2017GSK106304

PATIENT
  Age: 85 Year
  Sex: Female

DRUGS (3)
  1. KARDEGIC [Interacting]
     Active Substance: ASPIRIN LYSINE
     Indication: PAIN
     Dosage: UNK
     Route: 048
     Dates: end: 201705
  2. SPIFEN [Interacting]
     Active Substance: IBUPROFEN
     Indication: PAIN
     Dosage: UNK
     Route: 048
     Dates: end: 201705
  3. VOLTARENE [Suspect]
     Active Substance: DICLOFENAC SODIUM
     Indication: PAIN
     Dosage: UNK
     Route: 048
     Dates: end: 201705

REACTIONS (5)
  - Melaena [Recovered/Resolved]
  - Drug interaction [Unknown]
  - Haematemesis [Recovered/Resolved]
  - Oesophagitis [Recovered/Resolved]
  - Anaemia [Recovering/Resolving]

NARRATIVE: CASE EVENT DATE: 201705
